FAERS Safety Report 4831979-1 (Version None)
Quarter: 2005Q4

REPORT INFORMATION
  Report Type: 
  Country: None (occurrence: None)
  Receive Date: 20051116
  Receipt Date: 20051104
  Transmission Date: 20060501
  Serious: Yes (Death, Life-Threatening, Hospitalization, Disabling)
  Sender: FDA-Public Use
  Company Number: 150-20785-05100359

PATIENT
  Age: 65 Year
  Sex: Male

DRUGS (2)
  1. THALIDOMIDE - PHARMION (THALIDOMIDE) (50 MILLIGRAM, CAPSULES) [Suspect]
     Indication: MULTIPLE MYELOMA
     Dosage: 100 MG DAILY FOR 28 DAYS, ORAL
     Route: 048
     Dates: start: 20021101, end: 20040501
  2. THALIDOMIDE - PHARMION (THALIDOMIDE) (50 MILLIGRAM, CAPSULES) [Suspect]
     Indication: MULTIPLE MYELOMA
     Dosage: 100 MG DAILY FOR 28 DAYS, ORAL
     Route: 048
     Dates: start: 20040501

REACTIONS (4)
  - CHRONIC RESPIRATORY FAILURE [None]
  - PNEUMONIA [None]
  - POLYNEUROPATHY [None]
  - THERAPY NON-RESPONDER [None]
